FAERS Safety Report 19750622 (Version 2)
Quarter: 2021Q3

REPORT INFORMATION
  Report Type: Report from Study
  Country: US (occurrence: US)
  Receive Date: 20210826
  Receipt Date: 20210922
  Transmission Date: 20211014
  Serious: Yes (Other)
  Sender: FDA-Public Use
  Company Number: US-PFIZER INC-2021612263

PATIENT
  Age: 68 Year
  Sex: Female

DRUGS (4)
  1. IBRANCE [Suspect]
     Active Substance: PALBOCICLIB
     Dosage: 100 MG, CYCLIC (100 MG DAILY FOR 21 DAYS OF 28 DAY CYCLE)
     Route: 048
     Dates: start: 20210913
  2. FASLODEX [Concomitant]
     Active Substance: FULVESTRANT
     Dosage: UNK
     Route: 030
  3. TUMS [Concomitant]
     Active Substance: CALCIUM CARBONATE
     Dosage: UNK
  4. IBRANCE [Suspect]
     Active Substance: PALBOCICLIB
     Indication: BREAST CANCER FEMALE
     Dosage: 125 MG, CYCLIC (DAILY FOR 21 DAYS ON AND 7 DAYS OFF (DAILY FOR 21 DAYS OF 28 DAY CYCLE))
     Route: 048
     Dates: start: 20210519

REACTIONS (18)
  - Weight decreased [Recovering/Resolving]
  - Parosmia [Unknown]
  - Cough [Not Recovered/Not Resolved]
  - Neutropenia [Unknown]
  - White blood cell count decreased [Unknown]
  - Dysphagia [Unknown]
  - Epistaxis [Unknown]
  - Wheezing [Unknown]
  - Pulmonary congestion [Unknown]
  - Pneumonitis [Unknown]
  - Anaemia [Unknown]
  - Dyspepsia [Recovering/Resolving]
  - Productive cough [Unknown]
  - Dyspnoea [Unknown]
  - Asthenia [Unknown]
  - Fatigue [Recovering/Resolving]
  - Oral pain [Unknown]
  - Red blood cell count decreased [Unknown]

NARRATIVE: CASE EVENT DATE: 2021
